FAERS Safety Report 9277204 (Version 3)
Quarter: 2013Q2

REPORT INFORMATION
  Report Type: Report from Study
  Country: CA (occurrence: CA)
  Receive Date: 20130508
  Receipt Date: 20130613
  Transmission Date: 20140414
  Serious: Yes (Other)
  Sender: FDA-Public Use
  Company Number: CA-ROCHE-1222088

PATIENT
  Age: 73 Year
  Sex: Female
  Weight: 90.9 kg

DRUGS (10)
  1. RITUXAN [Suspect]
     Indication: RHEUMATOID ARTHRITIS
     Dosage: PREVIOUS DOSE: 21/JUN/2012
     Route: 042
     Dates: start: 20071016
  2. DIPHENHYDRAMINE HCL [Concomitant]
     Indication: PREMEDICATION
     Route: 048
     Dates: start: 20100615
  3. ACETAMINOPHEN [Concomitant]
     Indication: PREMEDICATION
     Route: 048
     Dates: start: 20100615
  4. METHYLPREDNISOLONE [Concomitant]
     Indication: PREMEDICATION
     Route: 042
     Dates: start: 20100615
  5. METHOTREXATE [Concomitant]
     Route: 065
  6. CELEBREX [Concomitant]
     Route: 065
  7. LIPITOR [Concomitant]
     Route: 065
  8. NEXIUM [Concomitant]
     Route: 065
  9. ZOPICLONE [Concomitant]
     Route: 065
  10. TYLENOL [Concomitant]

REACTIONS (5)
  - Cataract [Not Recovered/Not Resolved]
  - Weight increased [Not Recovered/Not Resolved]
  - Rheumatoid arthritis [Not Recovered/Not Resolved]
  - Bronchitis [Unknown]
  - Visual impairment [Not Recovered/Not Resolved]
